FAERS Safety Report 15075084 (Version 1)
Quarter: 2018Q2

REPORT INFORMATION
  Report Type: Spontaneous
  Country: US (occurrence: US)
  Receive Date: 20180627
  Receipt Date: 20180627
  Transmission Date: 20180711
  Serious: Yes (Disabling)
  Sender: FDA-Public Use
  Company Number: US-SAOL THERAPEUTICS-2017SAO03434

PATIENT
  Sex: Female
  Weight: 99.77 kg

DRUGS (2)
  1. BACLOFEN. [Suspect]
     Active Substance: BACLOFEN
     Route: 037
  2. MORPHINE [Suspect]
     Active Substance: MORPHINE
     Route: 037

REACTIONS (7)
  - Device dislocation [Unknown]
  - Gait inability [Unknown]
  - Off label use [Unknown]
  - Nausea [Unknown]
  - Hypersomnia [Unknown]
  - Overdose [Unknown]
  - Burning sensation [Unknown]
